FAERS Safety Report 9711322 (Version 2)
Quarter: 2013Q4

REPORT INFORMATION
  Report Type: Spontaneous
  Country: US (occurrence: US)
  Receive Date: 20131126
  Receipt Date: 20131129
  Transmission Date: 20140711
  Serious: Yes (Other)
  Sender: FDA-Public Use
  Company Number: US-RB-060121-13

PATIENT
  Age: 94 Year
  Sex: Female

DRUGS (3)
  1. MUCINEX FAST MAX DM MAX [Suspect]
     Indication: NASOPHARYNGITIS
     Dosage: 20 ML EVERY 4 HOURS
     Route: 048
     Dates: start: 20131109
  2. MUCINEX [Suspect]
     Indication: NASOPHARYNGITIS
     Route: 048
     Dates: start: 20131111
  3. COUMADIN [Concomitant]
     Indication: PRODUCT USED FOR UNKNOWN INDICATION

REACTIONS (1)
  - International normalised ratio increased [Unknown]
